FAERS Safety Report 16602751 (Version 2)
Quarter: 2019Q3

REPORT INFORMATION
  Report Type: Report from Study
  Country: None (occurrence: NL)
  Receive Date: 20190720
  Receipt Date: 20190930
  Transmission Date: 20191004
  Serious: Yes (Hospitalization)
  Sender: FDA-Public Use
  Company Number: NL-ABBVIE-18K-114-2311746-00

PATIENT
  Age: 72 Year
  Sex: Male
  Weight: 82 kg

DRUGS (9)
  1. DUODOPA [Suspect]
     Active Substance: CARBIDOPA\LEVODOPA
     Dosage: MD 9,0 CD 2,9 ED 3,0
     Route: 050
  2. RIVASTIGMINE. [Concomitant]
     Active Substance: RIVASTIGMINE
     Indication: PRODUCT USED FOR UNKNOWN INDICATION
     Dosage: DOSAGES INCREASING
  3. CLOZAPINE. [Concomitant]
     Active Substance: CLOZAPINE
     Dosage: DOSAGES INCREASING
  4. DUODOPA [Suspect]
     Active Substance: CARBIDOPA\LEVODOPA
     Dosage: CONTINUOUS DOSE 2.3
     Route: 050
  5. DUODOPA [Suspect]
     Active Substance: CARBIDOPA\LEVODOPA
     Dosage: MD: 9.0, CD: 2.3, ED: 3.0, CND: 1.1, END: 1.0
     Route: 050
  6. DUODOPA [Suspect]
     Active Substance: CARBIDOPA\LEVODOPA
     Dosage: INCREASED CD  OF NIGHT PUMP BY 0.2 ML/HR FROM 1.1 ML/HR TO 1.3 ML/HR
     Route: 050
  7. DUODOPA [Suspect]
     Active Substance: CARBIDOPA\LEVODOPA
     Dosage: MD 9 CD 2.9 ED DAY 3 CD NIGHT 2.9 ED NIGHT 1.5
     Route: 050
  8. CLOZAPINE. [Concomitant]
     Active Substance: CLOZAPINE
     Indication: PRODUCT USED FOR UNKNOWN INDICATION
     Dates: start: 20190618
  9. DUODOPA [Suspect]
     Active Substance: CARBIDOPA\LEVODOPA
     Indication: PRODUCT USED FOR UNKNOWN INDICATION
     Dosage: MD: 15  CD:2.4    ED:  3
     Route: 050
     Dates: start: 20161013

REACTIONS (28)
  - Abnormal faeces [Not Recovered/Not Resolved]
  - Disturbance in attention [Not Recovered/Not Resolved]
  - Faeces hard [Not Recovered/Not Resolved]
  - Medical device site dryness [Unknown]
  - Therapeutic product effect incomplete [Unknown]
  - Constipation [Unknown]
  - Confusional state [Not Recovered/Not Resolved]
  - Muscle rigidity [Not Recovered/Not Resolved]
  - Dyschezia [Not Recovered/Not Resolved]
  - Underdose [Unknown]
  - On and off phenomenon [Not Recovered/Not Resolved]
  - Parkinsonism [Not Recovered/Not Resolved]
  - Hallucination [Recovered/Resolved]
  - Dependence [Not Recovered/Not Resolved]
  - Freezing phenomenon [Not Recovered/Not Resolved]
  - Gait disturbance [Not Recovered/Not Resolved]
  - Cognitive disorder [Not Recovered/Not Resolved]
  - Musculoskeletal stiffness [Not Recovered/Not Resolved]
  - Device alarm issue [Unknown]
  - Dyskinesia [Not Recovered/Not Resolved]
  - Frequent bowel movements [Not Recovered/Not Resolved]
  - Speech disorder [Not Recovered/Not Resolved]
  - Aggression [Not Recovered/Not Resolved]
  - Mobility decreased [Not Recovered/Not Resolved]
  - Confusional state [Recovered/Resolved]
  - Fall [Recovered/Resolved]
  - Abnormal dreams [Not Recovered/Not Resolved]
  - Unevaluable event [Not Recovered/Not Resolved]

NARRATIVE: CASE EVENT DATE: 201803
